FAERS Safety Report 7930563-0 (Version None)
Quarter: 2011Q4

REPORT INFORMATION
  Report Type: 
  Country: None (occurrence: None)
  Receive Date: 20111121
  Receipt Date: 20111116
  Transmission Date: 20120403
  Serious: No
  Sender: FDA-Public Use
  Company Number: US-TEVA-306440USA

PATIENT
  Sex: Female
  Weight: 63.56 kg

DRUGS (1)
  1. PLAN B ONE-STEP [Suspect]
     Indication: POST COITAL CONTRACEPTION
     Dosage: 1.5 MILLIGRAM;
     Route: 048
     Dates: start: 20110924, end: 20110924

REACTIONS (8)
  - STRESS [None]
  - NAUSEA [None]
  - MENSTRUATION IRREGULAR [None]
  - BREAST TENDERNESS [None]
  - CONSTIPATION [None]
  - POLLAKIURIA [None]
  - MUSCLE SPASMS [None]
  - MENSTRUATION DELAYED [None]
